FAERS Safety Report 8064378-2 (Version None)
Quarter: 2012Q1

REPORT INFORMATION
  Report Type: 
  Country: None (occurrence: None)
  Receive Date: 20120123
  Receipt Date: 20120112
  Transmission Date: 20120608
  Serious: Yes (Hospitalization)
  Sender: FDA-Public Use
  Company Number: IT-BAXTER-2011BH040536

PATIENT
  Sex: Male

DRUGS (1)
  1. ARTISS [Suspect]
     Indication: FACE LIFT
     Route: 065
     Dates: start: 20111220, end: 20111220

REACTIONS (4)
  - HAEMORRHAGE [None]
  - DRUG INEFFECTIVE [None]
  - SWELLING [None]
  - HAEMATOMA [None]
